FAERS Safety Report 17703666 (Version 1)
Quarter: 2020Q2

REPORT INFORMATION
  Report Type: Spontaneous
  Country: ES (occurrence: ES)
  Receive Date: 20200424
  Receipt Date: 20200424
  Transmission Date: 20200714
  Serious: Yes (Death)
  Sender: FDA-Public Use
  Company Number: ES-TEVA-2020-ES-1226209

PATIENT
  Age: 95 Year
  Sex: Female

DRUGS (9)
  1. RISPERIDONA (7201A) [Interacting]
     Active Substance: RISPERIDONE
     Indication: AGITATION
     Dosage: 1 MG
     Route: 048
     Dates: start: 20200312, end: 20200313
  2. CLINDAMICINA HIDROCLORURO (616CH) [Concomitant]
     Indication: PNEUMONIA
     Dosage: 600 MG
     Route: 042
     Dates: start: 20200312, end: 20200314
  3. QUETIAPINA (1136A) [Suspect]
     Active Substance: QUETIAPINE
     Indication: AGITATION
     Dosage: 25 MG
     Route: 048
     Dates: start: 20200312, end: 20200313
  4. LEVOFLOXACINO (2791A) [Interacting]
     Active Substance: LEVOFLOXACIN
     Indication: PNEUMONIA
     Dosage: 500 MG
     Route: 042
     Dates: start: 20200312, end: 20200314
  5. LORAZEPAM (1864A) [Concomitant]
     Active Substance: LORAZEPAM
     Dosage: 1 MG
     Route: 048
     Dates: start: 20200312, end: 20200313
  6. FUROSEMIDA (1615A) [Concomitant]
     Active Substance: FUROSEMIDE
     Dosage: 40 MG
     Route: 048
     Dates: start: 20200313, end: 20200314
  7. HIDROXICLOROQUINA SULFATO (2143SU) [Interacting]
     Active Substance: HYDROXYCHLOROQUINE SULFATE
     Indication: CORONAVIRUS INFECTION
     Dosage: 200 MG
     Route: 048
     Dates: start: 20200313, end: 20200314
  8. KALETRA [Interacting]
     Active Substance: LOPINAVIR\RITONAVIR
     Indication: CORONAVIRUS INFECTION
     Dosage: 2 DOSAGE FORMS
     Route: 048
     Dates: start: 20200312, end: 20200314
  9. LOSARTAN (7157A) [Concomitant]
     Active Substance: LOSARTAN
     Dosage: 50 MG
     Route: 048
     Dates: start: 20200313, end: 20200314

REACTIONS (2)
  - Drug interaction [Unknown]
  - Sudden death [Fatal]

NARRATIVE: CASE EVENT DATE: 20200314
